FAERS Safety Report 25960570 (Version 1)
Quarter: 2025Q4

REPORT INFORMATION
  Report Type: Spontaneous
  Country: EU (occurrence: EU)
  Receive Date: 20251027
  Receipt Date: 20251027
  Transmission Date: 20260117
  Serious: Yes (Hospitalization, Other)
  Sender: ACCORD
  Company Number: None

PATIENT
  Age: 45 Year
  Sex: Female

DRUGS (3)
  1. CARBOPLATIN [Suspect]
     Active Substance: CARBOPLATIN
     Indication: Breast cancer
     Dosage: 210 MG WEEKLY, STRENGTH: 10 MG/ML, EFG, 1 VIAL OF 15 ML
     Dates: start: 20250729
  2. PEMBROLIZUMAB [Suspect]
     Active Substance: PEMBROLIZUMAB
     Indication: Breast cancer
     Dosage: 110 MG EVERY 21 DAYS, STRENGTH: 25 MG/ML, 1 VIAL OF 4 ML
     Dates: start: 20250729, end: 20250819
  3. PACLITAXEL [Suspect]
     Active Substance: PACLITAXEL
     Indication: Breast cancer
     Dosage: 130 MG WEEKLY, STRENGTH: 6 MG/ML, EFG, 5 VIALS OF 16.7 ML
     Dates: start: 20250729

REACTIONS (1)
  - Toxic epidermal necrolysis [Unknown]

NARRATIVE: CASE EVENT DATE: 20250909
